FAERS Safety Report 12498932 (Version 1)
Quarter: 2016Q2

REPORT INFORMATION
  Report Type: Report from Study
  Country: IT (occurrence: IT)
  Receive Date: 20160627
  Receipt Date: 20160627
  Transmission Date: 20160815
  Serious: Yes (Disabling)
  Sender: FDA-Public Use
  Company Number: IT-ROCHE-1782979

PATIENT
  Age: 63 Year
  Sex: Female

DRUGS (8)
  1. ORUDIS [Suspect]
     Active Substance: KETOPROFEN
     Indication: OSTEOARTHRITIS
  2. RANIBIZUMAB [Suspect]
     Active Substance: RANIBIZUMAB
     Dosage: 0.5 MG, (0.5MG/0.05 ML)
     Route: 050
     Dates: start: 20150505, end: 20150505
  3. SIRDALUD [Concomitant]
     Active Substance: TIZANIDINE
     Indication: OSTEOARTHRITIS
  4. ORUDIS [Suspect]
     Active Substance: KETOPROFEN
     Indication: PAIN
     Dosage: 1 EVERY DAY
     Route: 030
     Dates: start: 20150512, end: 20150523
  5. FELDENE [Suspect]
     Active Substance: PIROXICAM
     Indication: OSTEOARTHRITIS
  6. RANIBIZUMAB [Suspect]
     Active Substance: RANIBIZUMAB
     Indication: NEOVASCULAR AGE-RELATED MACULAR DEGENERATION
     Dosage: 0.5 MG, (0.5MG/0.05 ML)
     Route: 050
     Dates: start: 20141029, end: 20141029
  7. FELDENE [Suspect]
     Active Substance: PIROXICAM
     Indication: PAIN
     Dosage: 1 EVERY DAY
     Route: 060
     Dates: start: 20150526, end: 20150605
  8. SIRDALUD [Concomitant]
     Active Substance: TIZANIDINE
     Indication: PAIN
     Dosage: 1 EVERY DAY
     Route: 065
     Dates: start: 20150523, end: 20150605

REACTIONS (1)
  - Retinal haemorrhage [Recovering/Resolving]

NARRATIVE: CASE EVENT DATE: 20160602
